FAERS Safety Report 26159116 (Version 1)
Quarter: 2025Q4

REPORT INFORMATION
  Report Type: Spontaneous
  Country: US (occurrence: US)
  Receive Date: 20251216
  Receipt Date: 20251216
  Transmission Date: 20260117
  Serious: No
  Sender: BRISTOL-MYERS SQUIBB COMPANY
  Company Number: US-BRISTOL-MYERS SQUIBB COMPANY-2025-166817

PATIENT
  Age: 77 Year
  Sex: Female

DRUGS (3)
  1. ADAGRASIB [Suspect]
     Active Substance: ADAGRASIB
     Indication: Endometrial cancer metastatic
  2. ADAGRASIB [Suspect]
     Active Substance: ADAGRASIB
  3. ADAGRASIB [Suspect]
     Active Substance: ADAGRASIB

REACTIONS (3)
  - Nausea [Unknown]
  - Vomiting [Unknown]
  - Off label use [Unknown]
